FAERS Safety Report 13232059 (Version 2)
Quarter: 2017Q1

REPORT INFORMATION
  Report Type: Spontaneous
  Country: FR (occurrence: FR)
  Receive Date: 20170214
  Receipt Date: 20170315
  Transmission Date: 20170428
  Serious: Yes (Other)
  Sender: FDA-Public Use
  Company Number: FR-SEPTODONT-201703852

PATIENT
  Age: 17 Year
  Sex: Female

DRUGS (1)
  1. DELTAZINE 40 MG/ML ADR?NALIN?E AU 1/200.000 [Suspect]
     Active Substance: ARTICAINE\EPINEPHRINE
     Indication: LOCAL ANAESTHESIA
     Dosage: PERIAPICAL ANESTHESIA TOOTH #35 AND INTRALIGAMENTAL ANESTHESIA TOOTH #36
     Route: 004
     Dates: start: 201601

REACTIONS (3)
  - Bone loss [Not Recovered/Not Resolved]
  - Tooth infection [Not Recovered/Not Resolved]
  - Dental fistula [Not Recovered/Not Resolved]
